FAERS Safety Report 18497013 (Version 1)
Quarter: 2020Q4

REPORT INFORMATION
  Report Type: Report from Study
  Country: FR (occurrence: FR)
  Receive Date: 20201112
  Receipt Date: 20201112
  Transmission Date: 20210114
  Serious: Yes (Other)
  Sender: FDA-Public Use
  Company Number: FR-IPSEN BIOPHARMACEUTICALS, INC.-2011-0564

PATIENT
  Age: 4 Year
  Sex: Female
  Weight: 15 kg

DRUGS (3)
  1. INCRELEX [Suspect]
     Active Substance: MECASERMIN
     Indication: PRIMARY INSULIN LIKE GROWTH FACTOR-1 DEFICIENCY
     Route: 058
     Dates: start: 20100609, end: 20100616
  2. INCRELEX [Suspect]
     Active Substance: MECASERMIN
     Dosage: 0.17 MG/ KG = 170 UG/ KG
     Route: 058
     Dates: start: 20100617, end: 20100624
  3. INCRELEX [Suspect]
     Active Substance: MECASERMIN
     Dosage: 0.21 MG/ KG = 210 UG/ KG
     Route: 058
     Dates: start: 20100625, end: 20110223

REACTIONS (2)
  - Overdose [Recovered/Resolved]
  - Deafness [Not Recovered/Not Resolved]

NARRATIVE: CASE EVENT DATE: 20100617
